FAERS Safety Report 23670856 (Version 1)
Quarter: 2024Q1

REPORT INFORMATION
  Report Type: Spontaneous
  Country: US (occurrence: US)
  Receive Date: 20240326
  Receipt Date: 20240326
  Transmission Date: 20240410
  Serious: No
  Sender: FDA-Public Use
  Company Number: US-BRISTOL-MYERS SQUIBB COMPANY-2024-044024

PATIENT
  Sex: Male

DRUGS (3)
  1. OZANIMOD [Suspect]
     Active Substance: OZANIMOD
     Indication: Multiple sclerosis
     Dosage: DOSE : 0.92 MG;     FREQ : 0.92 MG DAILY
     Route: 048
  2. OZANIMOD [Suspect]
     Active Substance: OZANIMOD
     Dosage: DOSE : 0.92 MG;     FREQ : 0.92 MG DAILY
     Route: 048
  3. KESIMPTA [Suspect]
     Active Substance: OFATUMUMAB
     Indication: Multiple sclerosis

REACTIONS (2)
  - Multiple sclerosis relapse [Unknown]
  - COVID-19 [Unknown]
